FAERS Safety Report 10258961 (Version 1)
Quarter: 2014Q2

REPORT INFORMATION
  Report Type: Spontaneous
  Country: DE (occurrence: DE)
  Receive Date: 20140625
  Receipt Date: 20140625
  Transmission Date: 20141212
  Serious: Yes (Life-Threatening, Hospitalization)
  Sender: FDA-Public Use
  Company Number: DE-BRISTOL-MYERS SQUIBB COMPANY-21068630

PATIENT
  Age: 62 Year
  Sex: Male

DRUGS (9)
  1. FORXIGA [Suspect]
     Indication: DIABETES MELLITUS
     Route: 048
  2. EXFORGE [Concomitant]
     Dosage: 1DF=5/160MG
     Route: 048
  3. LANTUS [Concomitant]
     Route: 058
  4. ASS [Concomitant]
     Route: 048
  5. DISALUNIL [Concomitant]
     Route: 048
  6. AMARYL [Concomitant]
     Route: 048
  7. JANUVIA [Concomitant]
     Route: 048
  8. CYMBALTA [Concomitant]
     Route: 048
  9. HUMALOG [Concomitant]

REACTIONS (1)
  - Hypersensitivity vasculitis [Recovered/Resolved]
